FAERS Safety Report 24103007 (Version 1)
Quarter: 2024Q3

REPORT INFORMATION
  Report Type: Report from Study
  Country: US (occurrence: None)
  Receive Date: 20240717
  Receipt Date: 20240717
  Transmission Date: 20241017
  Serious: Yes (Other)
  Sender: ASTRAZENECA
  Company Number: 2020SE98806

PATIENT
  Sex: Female

DRUGS (2)
  1. FASENRA [Suspect]
     Active Substance: BENRALIZUMAB
     Route: 058
     Dates: start: 201912
  2. BUTALBITAL [Concomitant]
     Active Substance: BUTALBITAL
     Dates: start: 20200714

REACTIONS (2)
  - Migraine [Unknown]
  - Cataract [Unknown]
